FAERS Safety Report 15523073 (Version 1)
Quarter: 2018Q4

REPORT INFORMATION
  Report Type: Spontaneous
  Country: US (occurrence: US)
  Receive Date: 20181015
  Receipt Date: 20181015
  Transmission Date: 20190205
  Serious: Yes (Death)
  Sender: FDA-Public Use
  Company Number: None

PATIENT
  Age: 44 Year
  Sex: Male

DRUGS (1)
  1. ESBRIET [Suspect]
     Active Substance: PIRFENIDONE
     Indication: IDIOPATHIC PULMONARY FIBROSIS
     Route: 048
     Dates: start: 20181003, end: 20181003

REACTIONS (4)
  - Pneumothorax [None]
  - Ventricular tachycardia [None]
  - Cardiac arrest [None]
  - Hypotension [None]

NARRATIVE: CASE EVENT DATE: 20181004
